FAERS Safety Report 5323529-0 (Version None)
Quarter: 2007Q2

REPORT INFORMATION
  Report Type: 
  Country: None (occurrence: None)
  Receive Date: 20070510
  Receipt Date: 20070510
  Transmission Date: 20071010
  Serious: Yes (Hospitalization)
  Sender: FDA-Public Use
  Company Number: None

PATIENT
  Age: 85 Year
  Sex: Male
  Weight: 94.3482 kg

DRUGS (16)
  1. LINEZOLID [Suspect]
     Indication: OSTEOMYELITIS
     Dosage: 600MG Q12H IV
     Route: 042
     Dates: start: 20070322, end: 20070419
  2. ACETAMINOPHEN [Concomitant]
  3. ACETAMINOPHEN AND CODEINE PHOSPHATE [Concomitant]
  4. PROCRIT [Concomitant]
  5. FERROUS SULFATE TAB [Concomitant]
  6. FLUCONAZOLE [Concomitant]
  7. HYDROCHLOROTHIAZIDE [Concomitant]
  8. METOPROLOL (TOPROL-XL) [Concomitant]
  9. NITROGLYCERIN [Concomitant]
  10. NYSTATIN [Concomitant]
  11. OMEPRAZOLE [Concomitant]
  12. OXYBUTYNIN CHLORIDE [Concomitant]
  13. PIPERACILLIN AND TAZOBACTAM [Concomitant]
  14. PROMETHAZINE [Concomitant]
  15. TERAZOSIN HCL [Concomitant]
  16. VALSARTAN [Concomitant]

REACTIONS (1)
  - PANCYTOPENIA [None]
